FAERS Safety Report 7596839-4 (Version None)
Quarter: 2011Q3

REPORT INFORMATION
  Report Type: 
  Country: None (occurrence: None)
  Receive Date: 20110708
  Receipt Date: 20110627
  Transmission Date: 20111222
  Serious: Yes (Other)
  Sender: FDA-Public Use
  Company Number: CA-JNJFOC-20110700676

PATIENT
  Sex: Female
  Weight: 76.2 kg

DRUGS (2)
  1. REMICADE [Suspect]
     Indication: CROHN'S DISEASE
     Route: 042
     Dates: start: 20071016
  2. ORTHO-NOVUM 7/7/7-21 [Concomitant]

REACTIONS (2)
  - DEPRESSION [None]
  - IMPULSIVE BEHAVIOUR [None]
